FAERS Safety Report 26076293 (Version 1)
Quarter: 2025Q4

REPORT INFORMATION
  Report Type: Spontaneous
  Country: BR (occurrence: BR)
  Receive Date: 20251121
  Receipt Date: 20251121
  Transmission Date: 20260118
  Serious: Yes (Other)
  Sender: NOVO NORDISK
  Company Number: BR-NOVOPROD-1564806

PATIENT
  Age: 66 Year
  Sex: Female

DRUGS (1)
  1. XULTOPHY 100/3.6 [Suspect]
     Active Substance: INSULIN DEGLUDEC\LIRAGLUTIDE
     Indication: Type 2 diabetes mellitus
     Dosage: 20 IU, QD
     Dates: start: 20251106

REACTIONS (6)
  - Presyncope [Unknown]
  - Loss of consciousness [Unknown]
  - Blood glucose increased [Unknown]
  - Device failure [Unknown]
  - Device loosening [Unknown]
  - Device use error [Unknown]

NARRATIVE: CASE EVENT DATE: 20251101
